FAERS Safety Report 6499006-0 (Version None)
Quarter: 2009Q4

REPORT INFORMATION
  Report Type: 
  Country: None (occurrence: None)
  Receive Date: 20091215
  Receipt Date: 20091201
  Transmission Date: 20100525
  Serious: Yes (Hospitalization)
  Sender: FDA-Public Use
  Company Number: FR-MYLANLABS-2009S1020682

PATIENT
  Age: 58 Year
  Sex: Female

DRUGS (10)
  1. LEVOFLOXACIN [Suspect]
     Route: 048
  2. MIRTAZAPINE [Interacting]
     Route: 048
  3. MIRTAZAPINE [Interacting]
     Route: 048
  4. METOCLOPRAMIDE [Interacting]
     Route: 048
  5. METOCLOPRAMIDE [Interacting]
     Dosage: 10MG BEFORE EACH MEAL
     Route: 048
  6. CEFEPIME [Suspect]
     Dosage: 1G EVERY 12 HOURS
     Route: 042
  7. PANTOPRAZOLE [Concomitant]
     Route: 048
  8. PARACETAMOL [Concomitant]
     Route: 048
  9. ENOXAPARIN SODIUM [Concomitant]
     Route: 058
  10. NYSTATIN [Concomitant]
     Route: 048

REACTIONS (3)
  - CONVULSION [None]
  - DRUG INTERACTION [None]
  - RASH [None]
